FAERS Safety Report 18308856 (Version 4)
Quarter: 2021Q1

REPORT INFORMATION
  Report Type: Spontaneous
  Country: US (occurrence: US)
  Receive Date: 20200924
  Receipt Date: 20210215
  Transmission Date: 20210419
  Serious: No
  Sender: FDA-Public Use
  Company Number: US-PFIZER INC-2020365380

PATIENT
  Age: 62 Year
  Sex: Female

DRUGS (2)
  1. BRAFTOVI [Suspect]
     Active Substance: ENCORAFENIB
     Indication: COLON CANCER
     Dosage: 300 MG, DAILY
     Route: 048
     Dates: start: 20200904
  2. BRAFTOVI [Suspect]
     Active Substance: ENCORAFENIB
     Dosage: 225 MG, DAILY (ON ^SOME DAYS^ SHE HAD TAKEN THREE PILLS)
     Route: 048
     Dates: start: 20200904

REACTIONS (6)
  - Pain in extremity [Unknown]
  - Neoplasm progression [Unknown]
  - Abdominal pain [Recovering/Resolving]
  - Peripheral swelling [Unknown]
  - Platelet count decreased [Unknown]
  - Intentional product use issue [Unknown]
